FAERS Safety Report 8162379-7 (Version None)
Quarter: 2012Q1

REPORT INFORMATION
  Report Type: 
  Country: None (occurrence: None)
  Receive Date: 20120224
  Receipt Date: 20120213
  Transmission Date: 20120608
  Serious: Yes (Hospitalization)
  Sender: FDA-Public Use
  Company Number: US-ELI_LILLY_AND_COMPANY-US201201001789

PATIENT
  Sex: Male

DRUGS (10)
  1. AMLODIPINE BESYLATE [Concomitant]
     Dosage: 5 MG, UNK
  2. FORTEO [Suspect]
     Dosage: 20 UG, QD
  3. PRIMIDONE [Concomitant]
     Dosage: 50 MG, UNK
  4. TAMSULOSIN HCL [Concomitant]
     Dosage: 0.4 MG, UNK
  5. FORTEO [Suspect]
     Dosage: 20 UG, QD
  6. FORTEO [Suspect]
     Dosage: 20 UG, QD
  7. METOPROLOL SUCCINATE [Concomitant]
     Dosage: 25 MG, UNK
  8. FORTEO [Suspect]
     Indication: OSTEOPOROSIS
     Dosage: 20 UG, QD
     Route: 065
     Dates: start: 20101101
  9. FOLIC ACID [Concomitant]
     Dosage: 1 MG, UNK
  10. HYDROCODONE BITARTRATE [Concomitant]
     Indication: PAIN

REACTIONS (4)
  - FALL [None]
  - ACCIDENTAL OVERDOSE [None]
  - DRUG DOSE OMISSION [None]
  - HIP FRACTURE [None]
